FAERS Safety Report 9926774 (Version 2)
Quarter: 2014Q1

REPORT INFORMATION
  Report Type: Spontaneous
  Country: US (occurrence: US)
  Receive Date: 20140226
  Receipt Date: 20140226
  Transmission Date: 20141002
  Serious: No
  Sender: FDA-Public Use
  Company Number: US-AMGEN-USASP2013075704

PATIENT
  Age: 50 Year
  Sex: Female
  Weight: 74.83 kg

DRUGS (9)
  1. ENBREL [Suspect]
     Indication: PSORIATIC ARTHROPATHY
     Dosage: 50 MG, QWK
     Route: 058
     Dates: start: 20130528
  2. VITAMIN C                          /00008001/ [Concomitant]
     Dosage: 500 MG, UNK
  3. PROPANOLOL                         /00030001/ [Concomitant]
     Dosage: 40 MG, UNK
  4. PRILOSEC                           /00661201/ [Concomitant]
     Dosage: 20 MG, UNK
  5. PRAVASTATIN [Concomitant]
     Dosage: 40 MG, UNK
  6. FOLIC ACID [Concomitant]
     Dosage: UNK
  7. VITAMIN B 12 [Concomitant]
     Dosage: 1000 MUG, UNK
  8. MAGNESIUM [Concomitant]
     Dosage: 30 MG, UNK
  9. VITAMIN D3 [Concomitant]
     Dosage: 4000 UNIT, UNK

REACTIONS (4)
  - Menopause [Unknown]
  - Breast pain [Unknown]
  - Sinusitis [Unknown]
  - Ear infection [Unknown]
